FAERS Safety Report 5249331-6 (Version None)
Quarter: 2007Q1

REPORT INFORMATION
  Report Type: 
  Country: None (occurrence: None)
  Receive Date: 20070228
  Receipt Date: 20070220
  Transmission Date: 20070707
  Serious: Yes (Death, Life-Threatening, Hospitalization)
  Sender: FDA-Public Use
  Company Number: GB-AVENTIS-200711555GDDC

PATIENT
  Age: 73 Year
  Sex: Male
  Weight: 63.1 kg

DRUGS (4)
  1. DOCETAXEL [Suspect]
     Dosage: DOSE: UNK
     Route: 042
     Dates: start: 20061228, end: 20061228
  2. PREDNISOLONE [Suspect]
     Dosage: DOSE: UNK
     Dates: start: 20061124, end: 20070102
  3. ZOLEDRONIC ACID [Suspect]
     Dosage: DOSE: UNK
  4. STRONTIUM [Suspect]
     Dosage: DOSE: UNK

REACTIONS (5)
  - HYPOTENSION [None]
  - LOSS OF CONSCIOUSNESS [None]
  - NEUTROPENIC SEPSIS [None]
  - PNEUMONIA [None]
  - SUBDURAL HAEMATOMA [None]
